FAERS Safety Report 24406326 (Version 1)
Quarter: 2024Q4

REPORT INFORMATION
  Report Type: Spontaneous
  Country: US (occurrence: US)
  Receive Date: 20241007
  Receipt Date: 20241007
  Transmission Date: 20250114
  Serious: Yes (Hospitalization, Other)
  Sender: SANOFI AVENTIS
  Company Number: US-SA-2024SA285256

PATIENT
  Age: 76 Year
  Sex: Male
  Weight: 41.6 kg

DRUGS (28)
  1. ENOXAPARIN SODIUM [Suspect]
     Active Substance: ENOXAPARIN SODIUM
     Indication: Pulmonary embolism
     Dosage: 1 MG/KG, BID
     Route: 058
  2. ENOXAPARIN SODIUM [Suspect]
     Active Substance: ENOXAPARIN SODIUM
     Dosage: DAY 14 OF HOSPITALIZATION, THE DECISION TO RESTART ENOXAPARIN
  3. ENOXAPARIN SODIUM [Suspect]
     Active Substance: ENOXAPARIN SODIUM
     Dosage: 40 MG, BID
  4. RIFAMPIN [Suspect]
     Active Substance: RIFAMPIN
     Indication: Tuberculosis
     Dosage: 300 MG, BID
  5. RIFAMPIN [Suspect]
     Active Substance: RIFAMPIN
     Dosage: 600 MG, QD
  6. WARFARIN [Suspect]
     Active Substance: WARFARIN
     Indication: Pulmonary embolism
     Dosage: 4 MG, QD
     Route: 048
  7. WARFARIN [Suspect]
     Active Substance: WARFARIN
     Dosage: 5 MG, QD
     Route: 048
  8. WARFARIN [Suspect]
     Active Substance: WARFARIN
     Dosage: 6 MG, QD
     Route: 048
  9. WARFARIN [Suspect]
     Active Substance: WARFARIN
     Dosage: 6.5 MG, QD
     Route: 048
  10. WARFARIN [Suspect]
     Active Substance: WARFARIN
     Dosage: 7.5 MG, QD
     Route: 048
  11. WARFARIN [Suspect]
     Active Substance: WARFARIN
     Dosage: 10 MG, QD
     Route: 048
  12. WARFARIN [Suspect]
     Active Substance: WARFARIN
     Dosage: 12 MG, QD
     Route: 048
  13. WARFARIN [Suspect]
     Active Substance: WARFARIN
     Dosage: 10 MG, QD
     Route: 048
  14. WARFARIN [Suspect]
     Active Substance: WARFARIN
     Dosage: 12 MG, QD
     Route: 048
  15. WARFARIN [Suspect]
     Active Substance: WARFARIN
     Dosage: 10 MG, QD
     Route: 048
  16. WARFARIN [Suspect]
     Active Substance: WARFARIN
     Dosage: 12 MG, QD
     Route: 048
  17. WARFARIN [Suspect]
     Active Substance: WARFARIN
     Dosage: 14 MG, QD
     Route: 048
  18. WARFARIN [Suspect]
     Active Substance: WARFARIN
     Dosage: 12 MG, QD
     Route: 048
  19. WARFARIN [Suspect]
     Active Substance: WARFARIN
     Dosage: 10 MG, QD
     Route: 048
  20. WARFARIN [Suspect]
     Active Substance: WARFARIN
     Dosage: 14 MG, QD
     Route: 048
  21. WARFARIN [Suspect]
     Active Substance: WARFARIN
     Dosage: 10 MG, QD
     Route: 048
  22. WARFARIN [Suspect]
     Active Substance: WARFARIN
     Dosage: 14 MG, QD
     Route: 048
  23. WARFARIN [Suspect]
     Active Substance: WARFARIN
     Dosage: 15 MG, QD
     Route: 048
  24. WARFARIN [Suspect]
     Active Substance: WARFARIN
     Dosage: 14 MG, QD
     Route: 048
  25. WARFARIN [Suspect]
     Active Substance: WARFARIN
     Dosage: 12 MG, QD
     Route: 048
  26. PYRAZINAMIDE [Concomitant]
     Active Substance: PYRAZINAMIDE
     Indication: Tuberculosis
     Dosage: 1000 MG, QD
  27. ETHAMBUTOL [Concomitant]
     Active Substance: ETHAMBUTOL HYDROCHLORIDE
     Indication: Tuberculosis
     Dosage: 800 MG, QD
  28. ISONIAZID [Concomitant]
     Active Substance: ISONIAZID
     Indication: Tuberculosis
     Dosage: 300 MG, QD

REACTIONS (4)
  - Gastrointestinal haemorrhage [Recovered/Resolved]
  - Melaena [Unknown]
  - Haemoglobin decreased [Recovered/Resolved]
  - Drug interaction [Unknown]
